FAERS Safety Report 15573770 (Version 4)
Quarter: 2019Q1

REPORT INFORMATION
  Report Type: Report from Study
  Country: GB (occurrence: GB)
  Receive Date: 20181101
  Receipt Date: 20190213
  Transmission Date: 20190417
  Serious: Yes (Hospitalization, Other)
  Sender: FDA-Public Use
  Company Number: GB-ROCHE-1768888

PATIENT
  Sex: Male

DRUGS (1)
  1. ESBRIET [Suspect]
     Active Substance: PIRFENIDONE
     Indication: IDIOPATHIC PULMONARY FIBROSIS
     Dosage: 3 CAPSULES THRICE A DAY
     Route: 048
     Dates: start: 20111109

REACTIONS (41)
  - Dyspnoea [Unknown]
  - Dyskinesia [Unknown]
  - Cardiac flutter [Unknown]
  - Decreased appetite [Unknown]
  - Pain [Unknown]
  - White blood cell count increased [Unknown]
  - Rhinorrhoea [Unknown]
  - Cough [Unknown]
  - Tachycardia [Unknown]
  - Musculoskeletal pain [Unknown]
  - Hypersomnia [Not Recovered/Not Resolved]
  - Thrombosis [Unknown]
  - Pulmonary embolism [Unknown]
  - Heart rate increased [Not Recovered/Not Resolved]
  - Fatigue [Not Recovered/Not Resolved]
  - Pharyngitis [Unknown]
  - Abdominal discomfort [Recovering/Resolving]
  - Oxygen saturation decreased [Unknown]
  - Chest pain [Not Recovered/Not Resolved]
  - Lethargy [Not Recovered/Not Resolved]
  - Wheelchair user [Unknown]
  - Fatigue [Unknown]
  - Depression [Unknown]
  - Insomnia [Recovering/Resolving]
  - Asthenia [Unknown]
  - Chest discomfort [Not Recovered/Not Resolved]
  - Diarrhoea [Recovering/Resolving]
  - Dysphonia [Unknown]
  - Nausea [Recovered/Resolved]
  - Oropharyngeal pain [Not Recovered/Not Resolved]
  - Muscle twitching [Recovered/Resolved]
  - Hypertension [Unknown]
  - Stress [Not Recovered/Not Resolved]
  - Gait disturbance [Not Recovered/Not Resolved]
  - Spinal disorder [Not Recovered/Not Resolved]
  - Lymphadenitis [Unknown]
  - Malaise [Unknown]
  - Ill-defined disorder [Not Recovered/Not Resolved]
  - Diabetes mellitus [Unknown]
  - Infection [Recovering/Resolving]
  - Diabetic retinopathy [Unknown]
